FAERS Safety Report 15571512 (Version 4)
Quarter: 2020Q4

REPORT INFORMATION
  Report Type: Report from Study
  Country: US (occurrence: US)
  Receive Date: 20181031
  Receipt Date: 20201120
  Transmission Date: 20210113
  Serious: No
  Sender: FDA-Public Use
  Company Number: PHEH2018US045543

PATIENT
  Sex: Female

DRUGS (1)
  1. COSENTYX [Suspect]
     Active Substance: SECUKINUMAB
     Indication: PSORIASIS
     Dosage: 300 MG, QMO
     Route: 058
     Dates: start: 20180911

REACTIONS (6)
  - Psoriasis [Unknown]
  - Scab [Unknown]
  - Erythema [Unknown]
  - Wound [Unknown]
  - Macule [Unknown]
  - Pruritus [Unknown]
